FAERS Safety Report 7247575-5 (Version None)
Quarter: 2011Q1

REPORT INFORMATION
  Report Type: 
  Country: None (occurrence: None)
  Receive Date: 20110127
  Receipt Date: 20110124
  Transmission Date: 20110831
  Serious: Yes (Other)
  Sender: FDA-Public Use
  Company Number: FR-ROCHE-754506

PATIENT
  Sex: Female
  Weight: 63 kg

DRUGS (11)
  1. ACETAMINOPHEN [Suspect]
     Route: 065
     Dates: start: 20080701
  2. KETOPROFEN [Concomitant]
     Dates: start: 19990101
  3. TOCILIZUMAB [Suspect]
     Route: 042
     Dates: start: 20100626
  4. METHOTREXATE [Suspect]
     Route: 065
     Dates: start: 19990101
  5. GOLD SALTS NOS [Concomitant]
     Route: 065
     Dates: start: 19940101
  6. PREDNISONE [Suspect]
     Route: 065
     Dates: start: 19950101
  7. BROMAZEPAM [Concomitant]
     Dates: start: 20060101
  8. ESOMEPRAZOLE [Concomitant]
     Dates: start: 20080101
  9. TRAMADOL HCL [Concomitant]
     Dates: start: 20080701
  10. TOCILIZUMAB [Suspect]
     Indication: RHEUMATOID ARTHRITIS
     Route: 042
     Dates: start: 20100127, end: 20100225
  11. SOTALOL [Concomitant]
     Dates: start: 20070101

REACTIONS (1)
  - ANAL CANCER [None]
